FAERS Safety Report 8143299-0 (Version None)
Quarter: 2012Q1

REPORT INFORMATION
  Report Type: 
  Country: None (occurrence: None)
  Receive Date: 20120217
  Receipt Date: 20120210
  Transmission Date: 20120608
  Serious: Yes (Hospitalization)
  Sender: FDA-Public Use
  Company Number: US-BAYER-2011-030101

PATIENT
  Age: 22 Year
  Sex: Female
  Weight: 63.492 kg

DRUGS (10)
  1. IBUPROFEN [Concomitant]
     Dosage: UNK UNK, PRN
     Route: 048
  2. BISMUTH SUBSALICYLATE [Concomitant]
     Indication: NAUSEA
  3. TUMS E-X [Concomitant]
     Indication: ABDOMINAL PAIN UPPER
     Dosage: UNK
     Route: 048
     Dates: start: 20090102
  4. TUMS E-X [Concomitant]
     Indication: NAUSEA
  5. DOXYCYCLINE [Concomitant]
     Dosage: 100 MG, BID
     Dates: start: 20081121
  6. VICODIN [Concomitant]
     Dosage: 1-2 EVERY 4 HOURS AS NEEDED
     Route: 048
     Dates: start: 20081107
  7. MAGNESIUM HYDROXIDE TAB [Concomitant]
     Dosage: UNK UNK, PRN
     Route: 048
  8. YAZ [Suspect]
     Indication: PREMENSTRUAL SYNDROME
     Dosage: UNK
     Dates: start: 20080801, end: 20100116
  9. YASMIN [Suspect]
     Indication: PREMENSTRUAL SYNDROME
     Dosage: UNK
     Dates: start: 20080801, end: 20100116
  10. BISMUTH SUBSALICYLATE [Concomitant]
     Indication: ABDOMINAL PAIN UPPER
     Dosage: UNK
     Route: 048
     Dates: start: 20090101

REACTIONS (6)
  - BILIARY DYSKINESIA [None]
  - ANXIETY [None]
  - CHOLECYSTITIS CHRONIC [None]
  - PAIN [None]
  - CHOLELITHIASIS [None]
  - ANHEDONIA [None]
